FAERS Safety Report 7595068-8 (Version None)
Quarter: 2011Q2

REPORT INFORMATION
  Report Type: 
  Country: None (occurrence: None)
  Receive Date: 20110620
  Receipt Date: 20110309
  Transmission Date: 20111010
  Serious: Yes (Hospitalization)
  Sender: FDA-Public Use
  Company Number: UTC-005631

PATIENT
  Age: 48 Year
  Sex: Female
  Weight: 51.8 kg

DRUGS (7)
  1. TRACLEER [Concomitant]
  2. ADCIRA (TADALAFIL) [Concomitant]
  3. DIURETICS (DIURETICS) [Concomitant]
  4. METOLATONE (METOLAZONE) [Concomitant]
  5. PREDNISONE [Concomitant]
  6. DIGOXIN [Concomitant]
  7. TYVASO [Suspect]
     Indication: PULMONARY ARTERIAL HYPERTENSION
     Dosage: 72 MCG (18 MCG, 4 IN 1 D), INHALATION
     Route: 055
     Dates: start: 20110216

REACTIONS (1)
  - FLUID OVERLOAD [None]
